FAERS Safety Report 25150153 (Version 1)
Quarter: 2025Q2

REPORT INFORMATION
  Report Type: Report from Study
  Country: US (occurrence: US)
  Receive Date: 20250402
  Receipt Date: 20250402
  Transmission Date: 20250716
  Serious: No
  Sender: VANDA PHARMACEUTICALS
  Company Number: US-VANDA PHARMACEUTICALS, INC-2024PONUS001134

PATIENT
  Age: 38 Year
  Sex: Female
  Weight: 85.896 kg

DRUGS (1)
  1. PONESIMOD [Suspect]
     Active Substance: PONESIMOD
     Indication: Multiple sclerosis
     Dosage: 20 MILLIGRAM, QD
     Route: 048
     Dates: start: 20241126, end: 20241204

REACTIONS (5)
  - Chills [Recovered/Resolved]
  - Pain [Recovered/Resolved]
  - Dizziness [Recovered/Resolved]
  - Fatigue [Recovered/Resolved]
  - Drug ineffective [Unknown]

NARRATIVE: CASE EVENT DATE: 20241203
